FAERS Safety Report 9320777 (Version 3)
Quarter: 2013Q3

REPORT INFORMATION
  Report Type: Spontaneous
  Country: US (occurrence: US)
  Receive Date: 20130531
  Receipt Date: 20130710
  Transmission Date: 20140515
  Serious: No
  Sender: FDA-Public Use
  Company Number: US-BIOGENIDEC-2013BI048741

PATIENT
  Age: 57 Year
  Sex: Female

DRUGS (1)
  1. TYSABRI [Suspect]
     Indication: MULTIPLE SCLEROSIS
     Route: 042
     Dates: start: 20130416, end: 20130416

REACTIONS (4)
  - Injection site reaction [Unknown]
  - Local swelling [Recovered/Resolved]
  - Catheter site swelling [Recovered/Resolved]
  - Hypersensitivity [Recovered/Resolved]
